FAERS Safety Report 4360251-1 (Version None)
Quarter: 2004Q2

REPORT INFORMATION
  Report Type: 
  Country: None (occurrence: None)
  Receive Date: 20040518
  Receipt Date: 20040518
  Transmission Date: 20050107
  Serious: No
  Sender: FDA-Public Use
  Company Number: None

PATIENT
  Age: 89 Year
  Sex: Female
  Weight: 47 kg

DRUGS (9)
  1. HYDROMORPHONE HCL [Suspect]
     Indication: ARTHRALGIA
     Dosage: 2 MG X IV
     Route: 042
     Dates: start: 20031014
  2. CEFAZOLIN [Concomitant]
  3. CLINDAMYCIN HCL [Concomitant]
  4. ENOXAPRIN [Concomitant]
  5. ... [Concomitant]
  6. FUROSEMIDE [Concomitant]
  7. LEVOFLOXACIN [Concomitant]
  8. TOPROL-XL [Concomitant]
  9. LEVOTHYROXINE SODIUM [Concomitant]

REACTIONS (1)
  - RESPIRATORY RATE DECREASED [None]
